FAERS Safety Report 19174752 (Version 1)
Quarter: 2021Q2

REPORT INFORMATION
  Report Type: Spontaneous
  Country: US (occurrence: US)
  Receive Date: 20210423
  Receipt Date: 20210423
  Transmission Date: 20210717
  Serious: Yes (Other)
  Sender: FDA-Public Use
  Company Number: US-PROCTER_AND_GAMBLE-GS21037230

PATIENT

DRUGS (2)
  1. HEAD AND SHOULDERS CLASSIC CLEAN DANDRUFF [Suspect]
     Active Substance: PYRITHIONE ZINC
     Dosage: UNK
     Route: 061
     Dates: start: 20210407
  2. HEAD AND SHOULDERS CLASSIC CLEAN DANDRUFF [Suspect]
     Active Substance: PYRITHIONE ZINC
     Dosage: UNK
     Route: 047
     Dates: start: 20210407

REACTIONS (10)
  - Skin burning sensation [Unknown]
  - Eye infection [Unknown]
  - Chemical burns of eye [Unknown]
  - Chemical burn of skin [Unknown]
  - Exposure via eye contact [Unknown]
  - Blindness transient [Unknown]
  - Eye pain [Unknown]
  - Mucosal disorder [Unknown]
  - Eye irritation [Unknown]
  - Accidental exposure to product [Unknown]

NARRATIVE: CASE EVENT DATE: 202104
